FAERS Safety Report 10806147 (Version 2)
Quarter: 2016Q2

REPORT INFORMATION
  Report Type: Report from Study
  Country: US (occurrence: US)
  Receive Date: 20150217
  Receipt Date: 20160422
  Transmission Date: 20160815
  Serious: Yes (Hospitalization, Other)
  Sender: FDA-Public Use
  Company Number: US-ABBVIE-14K-163-1251590-00

PATIENT
  Sex: Male

DRUGS (3)
  1. ENTYVIO [Concomitant]
     Active Substance: VEDOLIZUMAB
     Indication: PRODUCT USED FOR UNKNOWN INDICATION
     Dates: start: 2015
  2. HUMIRA [Suspect]
     Active Substance: ADALIMUMAB
     Route: 058
     Dates: start: 2014, end: 2014
  3. HUMIRA [Suspect]
     Active Substance: ADALIMUMAB
     Indication: CROHN^S DISEASE
     Route: 058
     Dates: start: 2009, end: 2011

REACTIONS (16)
  - Eating disorder [Not Recovered/Not Resolved]
  - Malnutrition [Unknown]
  - Radiculopathy [Not Recovered/Not Resolved]
  - Drug specific antibody present [Recovered/Resolved]
  - Blood albumin decreased [Not Recovered/Not Resolved]
  - Drug ineffective [Recovered/Resolved]
  - Hypoaesthesia [Not Recovered/Not Resolved]
  - Drug effect incomplete [Unknown]
  - Large intestinal stenosis [Recovered/Resolved]
  - Diarrhoea [Recovered/Resolved]
  - Drug ineffective [Recovered/Resolved]
  - Vitamin B6 decreased [Not Recovered/Not Resolved]
  - Vitamin B12 decreased [Not Recovered/Not Resolved]
  - Weight decreased [Not Recovered/Not Resolved]
  - Blood copper decreased [Not Recovered/Not Resolved]
  - Anaemia [Not Recovered/Not Resolved]

NARRATIVE: CASE EVENT DATE: 2009
